FAERS Safety Report 17946967 (Version 3)
Quarter: 2020Q3

REPORT INFORMATION
  Report Type: Spontaneous
  Country: US (occurrence: US)
  Receive Date: 20200626
  Receipt Date: 20200908
  Transmission Date: 20201103
  Serious: Yes (Other)
  Sender: FDA-Public Use
  Company Number: US-JNJFOC-20200617718

PATIENT

DRUGS (1)
  1. BENADRYL [Suspect]
     Active Substance: DIPHENHYDRAMINE HYDROCHLORIDE
     Indication: PRURITUS
     Dosage: TOOK TWO IN EARLY APRIL 2020
     Route: 065
     Dates: start: 202004

REACTIONS (8)
  - Vomiting [Recovered/Resolved]
  - Fatigue [Unknown]
  - Product contamination physical [Unknown]
  - Product taste abnormal [Unknown]
  - Hypoglycaemia [Unknown]
  - Illness [Unknown]
  - Nausea [Recovered/Resolved]
  - Product odour abnormal [Unknown]

NARRATIVE: CASE EVENT DATE: 202004
